FAERS Safety Report 15465755 (Version 1)
Quarter: 2018Q4

REPORT INFORMATION
  Report Type: Spontaneous
  Country: US (occurrence: US)
  Receive Date: 20181004
  Receipt Date: 20181004
  Transmission Date: 20190204
  Serious: No
  Sender: FDA-Public Use
  Company Number: US-FOUNDATIONCONSUMERHC-2018-US-011153

PATIENT
  Age: 24 Year
  Sex: Female
  Weight: 58.97 kg

DRUGS (2)
  1. PLAN B ONE-STEP [Suspect]
     Active Substance: LEVONORGESTREL
     Indication: POST COITAL CONTRACEPTION
     Dosage: 1.5MG
     Route: 048
     Dates: start: 20180527, end: 20180527
  2. ZYRTEC [Concomitant]
     Active Substance: CETIRIZINE HYDROCHLORIDE
     Dosage: PRN
     Route: 048

REACTIONS (4)
  - Vaginal discharge [Not Recovered/Not Resolved]
  - Vaginal haemorrhage [Recovered/Resolved]
  - Menstruation delayed [Not Recovered/Not Resolved]
  - Vaginal haemorrhage [Recovered/Resolved]

NARRATIVE: CASE EVENT DATE: 201805
